FAERS Safety Report 4463480-1 (Version None)
Quarter: 2004Q3

REPORT INFORMATION
  Report Type: 
  Country: None (occurrence: None)
  Receive Date: 20040928
  Receipt Date: 20040913
  Transmission Date: 20050211
  Serious: Yes (Hospitalization)
  Sender: FDA-Public Use
  Company Number: S04-ITA-04334-01

PATIENT
  Age: 81 Year
  Sex: Female

DRUGS (6)
  1. CITALOPRAM HYDROBROMIDE [Suspect]
     Indication: DEMENTIA
     Dosage: 16 MG/ML QD PO
     Route: 048
     Dates: start: 20040201, end: 20040820
  2. CITALOPRAM HYDROBROMIDE [Suspect]
     Indication: DEPRESSION
     Dosage: 16 MG/ML QD PO
     Route: 048
     Dates: start: 20040201, end: 20040820
  3. CITALOPRAM HYDROBROMIDE [Suspect]
     Indication: PSYCHOTIC DISORDER
     Dosage: 16 MG/ML QD PO
     Route: 048
     Dates: start: 20040201, end: 20040820
  4. TICLOPIDINE HCL [Concomitant]
  5. LORAZEPAM [Concomitant]
  6. MADOPAR [Concomitant]

REACTIONS (2)
  - OBLITERATIVE BRONCHIOLITIS [None]
  - PNEUMONIA [None]
